FAERS Safety Report 6247456-X (Version None)
Quarter: 2009Q2

REPORT INFORMATION
  Report Type: 
  Country: None (occurrence: None)
  Receive Date: 20090626
  Receipt Date: 20090619
  Transmission Date: 20091009
  Serious: Yes (Death)
  Sender: FDA-Public Use
  Company Number: US-GILEAD-2009-0022669

PATIENT
  Sex: Female
  Weight: 103.97 kg

DRUGS (8)
  1. LETAIRIS [Suspect]
     Indication: PULMONARY ARTERIAL HYPERTENSION
     Route: 048
     Dates: start: 20081001, end: 20090606
  2. LETAIRIS [Suspect]
     Dates: start: 20080923, end: 20081001
  3. DIGOXIN [Concomitant]
  4. ZETIA [Concomitant]
  5. BUMEX [Concomitant]
  6. VENTAVIS [Concomitant]
  7. ALDACTONE [Concomitant]
  8. REVATIO [Concomitant]

REACTIONS (1)
  - LYMPHOMA [None]
